FAERS Safety Report 5569027-0 (Version None)
Quarter: 2007Q4

REPORT INFORMATION
  Report Type: 
  Country: None (occurrence: None)
  Receive Date: 20071220
  Receipt Date: 20070517
  Transmission Date: 20080405
  Serious: No
  Sender: FDA-Public Use
  Company Number: A0651776A

PATIENT
  Age: 81 Year
  Sex: Male

DRUGS (7)
  1. AVODART [Suspect]
     Indication: BENIGN PROSTATIC HYPERPLASIA
     Dosage: .5MG PER DAY
     Route: 048
     Dates: start: 20061201
  2. ZOCOR [Concomitant]
  3. HYDROCHLOROTHIAZIDE [Concomitant]
  4. TERAZOSIN HCL [Concomitant]
  5. LIPITOR [Concomitant]
  6. CLOPIDOGREL BISULFATE [Concomitant]
  7. VITAMINS [Concomitant]

REACTIONS (2)
  - DANDRUFF [None]
  - DRY SKIN [None]
